FAERS Safety Report 8140873-2 (Version None)
Quarter: 2012Q1

REPORT INFORMATION
  Report Type: 
  Country: None (occurrence: None)
  Receive Date: 20120216
  Receipt Date: 20120209
  Transmission Date: 20120608
  Serious: Yes (Hospitalization, Other)
  Sender: FDA-Public Use
  Company Number: US-BAYER-2011-062496

PATIENT
  Age: 19 Year
  Sex: Female
  Weight: 56.689 kg

DRUGS (4)
  1. YAZ [Suspect]
     Indication: MENSTRUAL CYCLE MANAGEMENT
  2. YAZ [Suspect]
     Indication: PREMENSTRUAL SYNDROME
     Dosage: UNK
     Dates: start: 20070901, end: 20100201
  3. SINGULAIR [Concomitant]
     Indication: ASTHMA
     Dosage: UNK
     Dates: start: 20070101, end: 20110101
  4. NORCO [Concomitant]
     Indication: PAIN
     Dosage: UNK
     Dates: start: 20100119

REACTIONS (7)
  - EMOTIONAL DISTRESS [None]
  - CHOLECYSTITIS CHRONIC [None]
  - ANXIETY [None]
  - INJURY [None]
  - PAIN [None]
  - BILIARY DYSKINESIA [None]
  - BILIARY COLIC [None]
